FAERS Safety Report 23302655 (Version 2)
Quarter: 2024Q2

REPORT INFORMATION
  Report Type: Report from Study
  Country: CA (occurrence: CA)
  Receive Date: 20231215
  Receipt Date: 20240509
  Transmission Date: 20240715
  Serious: No
  Sender: FDA-Public Use
  Company Number: CA-BAUSCH-BL-2022-002728

PATIENT
  Age: 61 Year
  Sex: Female
  Weight: 68.554 kg

DRUGS (3)
  1. SILIQ [Suspect]
     Active Substance: BRODALUMAB
     Indication: Psoriasis
     Dosage: 210MG/ 1.5 ML, WEEKLY, WEEK 0 (17/JAN/2022), WEEK 2 (24/JAN/2022),WEEK 3(31/JAN/2022)
     Route: 058
     Dates: start: 20220117, end: 20220131
  2. SILIQ [Suspect]
     Active Substance: BRODALUMAB
     Dosage: 210MG/ 1.5 ML,  Q 2 WEEKS
     Route: 058
     Dates: start: 2022
  3. LITHIUM [Concomitant]
     Active Substance: LITHIUM
     Indication: Product used for unknown indication

REACTIONS (10)
  - Decreased immune responsiveness [Recovered/Resolved]
  - Abdominal distension [Recovered/Resolved]
  - Dry skin [Not Recovered/Not Resolved]
  - Skin exfoliation [Recovered/Resolved]
  - Tongue ulceration [Recovered/Resolved]
  - Tremor [Unknown]
  - Psoriasis [Unknown]
  - Disease recurrence [Not Recovered/Not Resolved]
  - Scar [Not Recovered/Not Resolved]
  - Oral candidiasis [Not Recovered/Not Resolved]

NARRATIVE: CASE EVENT DATE: 20220101
